FAERS Safety Report 15640303 (Version 2)
Quarter: 2018Q4

REPORT INFORMATION
  Report Type: Spontaneous
  Country: FR (occurrence: FR)
  Receive Date: 20181120
  Receipt Date: 20181124
  Transmission Date: 20190205
  Serious: Yes (Hospitalization, Other)
  Sender: FDA-Public Use
  Company Number: PHHY2018FR155456

PATIENT
  Age: 17 Year
  Sex: Female
  Weight: 59.8 kg

DRUGS (18)
  1. SUFENTA [Concomitant]
     Active Substance: SUFENTANIL CITRATE
     Indication: ANAESTHESIA
     Dosage: UNK (DOSE: 20GAMMA)
     Route: 065
     Dates: start: 20120723, end: 20120723
  2. CEFAZOLIN [Concomitant]
     Active Substance: CEFAZOLIN
     Indication: ANAESTHESIA
     Dosage: 2 G, UNK
     Route: 065
     Dates: start: 20120723, end: 20120723
  3. OMEPRAZOLE. [Suspect]
     Active Substance: OMEPRAZOLE
     Indication: DRUG THERAPY
     Dosage: 20 MG, UNK (TOTAL)
     Route: 048
     Dates: start: 20120723, end: 20120723
  4. IBUPROFEN. [Suspect]
     Active Substance: IBUPROFEN
     Indication: SELF-MEDICATION
     Dosage: UNK
     Route: 048
     Dates: start: 20120724, end: 20120725
  5. DIPRIVAN [Concomitant]
     Active Substance: PROPOFOL
     Dosage: 200 MG,1X
     Dates: start: 20120723, end: 20120723
  6. HYPNOVEL [MIDAZOLAM] [Concomitant]
     Indication: ANAESTHESIA
     Dosage: 1.5 MG,1X
     Dates: start: 20120723, end: 20120723
  7. PRIMPERAN [Concomitant]
     Active Substance: METOCLOPRAMIDE HYDROCHLORIDE
     Indication: DRUG THERAPY
     Dosage: 10 MG, UNK (TOTAL)
     Route: 065
     Dates: start: 20120723, end: 20120723
  8. PROFENID [Suspect]
     Active Substance: KETOPROFEN
     Dosage: 50 MG,UNK
     Route: 048
     Dates: start: 20120724, end: 20120724
  9. CEFAZOLIN [Concomitant]
     Active Substance: CEFAZOLIN
     Dosage: 2 G,UNK
     Dates: start: 20120723, end: 20120723
  10. PERFALGAN [Concomitant]
     Active Substance: ACETAMINOPHEN
     Indication: DRUG THERAPY
     Dosage: 1 G, BID
     Route: 042
     Dates: start: 20120723, end: 20120723
  11. MEFENAMIC ACID. [Suspect]
     Active Substance: MEFENAMIC ACID
     Indication: SELF-MEDICATION
     Dosage: UNK
     Route: 048
     Dates: start: 20120724, end: 20120725
  12. DIPRIVAN [Concomitant]
     Active Substance: PROPOFOL
     Indication: ANAESTHESIA
     Dosage: 200 MG, QD (1X)
     Route: 065
     Dates: start: 20120723, end: 20120723
  13. IBUPROFEN. [Suspect]
     Active Substance: IBUPROFEN
     Dosage: UNK
     Route: 048
     Dates: start: 20120724, end: 20120725
  14. PROFENID [Suspect]
     Active Substance: KETOPROFEN
     Indication: DRUG THERAPY
     Dosage: 100 MG, BID
     Route: 048
     Dates: start: 20120723, end: 20120723
  15. PRIMPERAN [Concomitant]
     Active Substance: METOCLOPRAMIDE HYDROCHLORIDE
     Dosage: 10 MG, QD (1X)
     Route: 065
     Dates: start: 20120723, end: 20120723
  16. MIDAZOLAM [Concomitant]
     Active Substance: MIDAZOLAM HYDROCHLORIDE
     Indication: ANAESTHESIA
     Dosage: 1.5 MG, UNK (1X)
     Route: 065
     Dates: start: 20120723, end: 20120723
  17. ATARAX [HYDROXYZINE] [Concomitant]
     Indication: PREMEDICATION
     Dosage: 100 MG,1X
     Dates: start: 20120723, end: 20120723
  18. ATARAX [Concomitant]
     Active Substance: HYDROXYZINE HYDROCHLORIDE
     Indication: PREMEDICATION
     Dosage: 100 MG, UNK (TOTAL)
     Route: 065
     Dates: start: 20120723, end: 20120723

REACTIONS (2)
  - Acute kidney injury [Recovered/Resolved]
  - Tubulointerstitial nephritis [Recovered/Resolved]

NARRATIVE: CASE EVENT DATE: 20120725
